FAERS Safety Report 6744369-1 (Version None)
Quarter: 2010Q2

REPORT INFORMATION
  Report Type: 
  Country: None (occurrence: None)
  Receive Date: 20100527
  Receipt Date: 20100517
  Transmission Date: 20101027
  Serious: Yes (Other)
  Sender: FDA-Public Use
  Company Number: US-AMGEN-KDL413117

PATIENT
  Sex: Female

DRUGS (3)
  1. ARANESP [Suspect]
     Indication: DIALYSIS
     Route: 042
     Dates: start: 20100101
  2. FERRLECIT FOR INJECTION [Suspect]
     Route: 042
     Dates: start: 20100101
  3. SALINE MIXTURE [Concomitant]
     Route: 042

REACTIONS (2)
  - PALPITATIONS [None]
  - VOMITING [None]
